FAERS Safety Report 13256101 (Version 1)
Quarter: 2017Q1

REPORT INFORMATION
  Report Type: Spontaneous
  Country: GB (occurrence: US)
  Receive Date: 20170220
  Receipt Date: 20170220
  Transmission Date: 20170428
  Serious: Yes (Other)
  Sender: FDA-Public Use
  Company Number: None

PATIENT
  Age: 17 Year
  Sex: Female
  Weight: 7 kg

DRUGS (1)
  1. NEXPLANON [Suspect]
     Active Substance: ETONOGESTREL
     Indication: CONTRACEPTION
     Dosage: ROUTE - ETONOGESTREL

REACTIONS (9)
  - Retching [None]
  - Chest pain [None]
  - Abdominal pain [None]
  - Back pain [None]
  - Implant site pain [None]
  - Paraesthesia [None]
  - Chest discomfort [None]
  - Feeling abnormal [None]
  - Nausea [None]
